FAERS Safety Report 8081969-3 (Version None)
Quarter: 2012Q1

REPORT INFORMATION
  Report Type: 
  Country: None (occurrence: None)
  Receive Date: 20120130
  Receipt Date: 20110830
  Transmission Date: 20120608
  Serious: No
  Sender: FDA-Public Use
  Company Number: US-ABBOTT-11P-163-0850078-00

PATIENT
  Sex: Male
  Weight: 149.37 kg

DRUGS (1)
  1. LUPRON DEPOT [Suspect]
     Indication: PROSTATE CANCER
     Route: 030
     Dates: start: 20100301

REACTIONS (2)
  - HYPERHIDROSIS [None]
  - ECZEMA [None]
